FAERS Safety Report 16208680 (Version 1)
Quarter: 2019Q2

REPORT INFORMATION
  Report Type: Spontaneous
  Country: US (occurrence: US)
  Receive Date: 20190417
  Receipt Date: 20190417
  Transmission Date: 20190711
  Serious: No
  Sender: FDA-Public Use
  Company Number: US-BAYER-2019-077568

PATIENT
  Age: 65 Year
  Sex: Male
  Weight: 113 kg

DRUGS (3)
  1. ALEVE [Suspect]
     Active Substance: NAPROXEN SODIUM
     Dosage: UNK
     Route: 065
  2. NORCO [Concomitant]
     Active Substance: ACETAMINOPHEN\HYDROCODONE BITARTRATE
     Indication: PAIN
     Dosage: UNK
  3. MORPHINE [MORPHINE SULFATE] [Concomitant]
     Indication: PAIN
     Dosage: UNK

REACTIONS (1)
  - Arthralgia [Unknown]
